FAERS Safety Report 13340499 (Version 1)
Quarter: 2017Q1

REPORT INFORMATION
  Report Type: Spontaneous
  Country: US (occurrence: US)
  Receive Date: 20170316
  Receipt Date: 20170316
  Transmission Date: 20170428
  Serious: No
  Sender: FDA-Public Use
  Company Number: US-PFIZER INC-2017107123

PATIENT
  Sex: Female

DRUGS (10)
  1. XELJANZ [Suspect]
     Active Substance: TOFACITINIB CITRATE
  2. ADVIL [Concomitant]
     Active Substance: IBUPROFEN
     Dosage: UNK UNK, AS NEEDED
  3. ORENCIA [Concomitant]
     Active Substance: ABATACEPT
     Indication: MUSCULOSKELETAL STIFFNESS
  4. ORENCIA [Concomitant]
     Active Substance: ABATACEPT
     Indication: PAIN
     Dosage: 125 MG, WEEKLY
     Route: 058
  5. LISINOPRIL. [Concomitant]
     Active Substance: LISINOPRIL
     Dosage: 10 MG, UNK
  6. PRILOSEC [Concomitant]
     Active Substance: OMEPRAZOLE MAGNESIUM
     Dosage: 40 MG, UNK
  7. VITAMIN D [Concomitant]
     Active Substance: CHOLECALCIFEROL
     Dosage: 2000 IU, UNK
  8. MAGNESIUM CITRATE. [Concomitant]
     Active Substance: MAGNESIUM CITRATE
  9. NEURONTIN [Suspect]
     Active Substance: GABAPENTIN
     Dosage: UNK
  10. RAYOS [Concomitant]
     Active Substance: PREDNISONE
     Dosage: 5 MG, 1X/DAY (Q.H.S)

REACTIONS (2)
  - Dry mouth [Unknown]
  - Sleep disorder [Unknown]
